FAERS Safety Report 11918867 (Version 1)
Quarter: 2016Q1

REPORT INFORMATION
  Report Type: Spontaneous
  Country: US (occurrence: None)
  Receive Date: 20160114
  Receipt Date: 20160114
  Transmission Date: 20160526
  Serious: Yes (Hospitalization)
  Sender: FDA-Public Use
  Company Number: None

PATIENT
  Age: 64 Year
  Sex: Male

DRUGS (1)
  1. TEGRETOL [Suspect]
     Active Substance: CARBAMAZEPINE
     Indication: SEIZURE
     Dates: start: 20140929, end: 20141111

REACTIONS (18)
  - Hepatic infiltration eosinophilic [None]
  - Cytomegalovirus hepatitis [None]
  - Blood alkaline phosphatase increased [None]
  - Fatigue [None]
  - Granulomatous liver disease [None]
  - Hepatotoxicity [None]
  - Hepatosplenomegaly [None]
  - Alanine aminotransferase increased [None]
  - Blood bilirubin increased [None]
  - Myalgia [None]
  - Lymphadenopathy [None]
  - Rash [None]
  - Aspartate aminotransferase increased [None]
  - Pyrexia [None]
  - Pruritus [None]
  - Antinuclear antibody positive [None]
  - False positive investigation result [None]
  - Drug-induced liver injury [None]

NARRATIVE: CASE EVENT DATE: 20141105
